FAERS Safety Report 20660296 (Version 1)
Quarter: 2022Q1

REPORT INFORMATION
  Report Type: Spontaneous
  Country: US (occurrence: None)
  Receive Date: 20220331
  Receipt Date: 20220331
  Transmission Date: 20220423
  Serious: No
  Sender: FDA-Public Use
  Company Number: US-IBSA PHARMA INC.-2021-IBS-01520

PATIENT
  Age: 76 Year

DRUGS (1)
  1. FLECTOR [Suspect]
     Active Substance: DICLOFENAC EPOLAMINE
     Indication: Product used for unknown indication
     Route: 062
     Dates: start: 20200806

REACTIONS (3)
  - Product physical issue [Unknown]
  - Product adhesion issue [Unknown]
  - Product storage error [Unknown]
